FAERS Safety Report 21741580 (Version 2)
Quarter: 2023Q1

REPORT INFORMATION
  Report Type: Spontaneous
  Country: JP (occurrence: JP)
  Receive Date: 20221216
  Receipt Date: 20230115
  Transmission Date: 20230418
  Serious: Yes (Hospitalization, Other)
  Sender: FDA-Public Use
  Company Number: JP-ONO-2022JP033308

PATIENT
  Age: 6 Decade
  Sex: Male

DRUGS (1)
  1. OPDIVO [Suspect]
     Active Substance: NIVOLUMAB
     Indication: Head and neck cancer
     Route: 041

REACTIONS (3)
  - Immune-mediated cholangitis [Recovering/Resolving]
  - Immune-mediated gastritis [Recovering/Resolving]
  - Trismus [Unknown]
